FAERS Safety Report 4903134-8 (Version None)
Quarter: 2006Q1

REPORT INFORMATION
  Report Type: 
  Country: None (occurrence: None)
  Receive Date: 20060207
  Receipt Date: 20060127
  Transmission Date: 20060701
  Serious: Yes (Hospitalization)
  Sender: FDA-Public Use
  Company Number: JP-BRISTOL-MYERS SQUIBB COMPANY-13268784

PATIENT
  Age: 82 Year
  Sex: Female

DRUGS (10)
  1. GATIFLO [Suspect]
     Indication: CYSTITIS
     Dosage: TAKEN 10-APR-2004 TO 14-APR-2004, AND AGAIN 27-APR-2004 TO 28-APR-2004
     Route: 048
     Dates: start: 20040410, end: 20040428
  2. EBRANTIL [Concomitant]
     Indication: CYSTITIS
     Route: 048
     Dates: start: 20040410, end: 20040414
  3. OMEPRAL [Concomitant]
     Route: 048
  4. FLUITRAN [Concomitant]
     Route: 048
  5. DISOPYRAMIDE [Concomitant]
     Route: 048
  6. YOUFENAC [Concomitant]
     Route: 048
  7. BEZATOL SR [Concomitant]
     Route: 048
  8. NIFESLOW [Concomitant]
     Route: 048
  9. LARILUDON [Concomitant]
     Route: 048
  10. SENNOSIDE [Concomitant]
     Route: 048

REACTIONS (1)
  - HYPOGLYCAEMIA [None]
